FAERS Safety Report 9525745 (Version 2)
Quarter: 2013Q3

REPORT INFORMATION
  Report Type: Spontaneous
  Country: JP (occurrence: JP)
  Receive Date: 20130916
  Receipt Date: 20130924
  Transmission Date: 20140515
  Serious: Yes (Other)
  Sender: FDA-Public Use
  Company Number: JP-NOVOPROD-387167

PATIENT
  Age: 83 Year
  Sex: Female
  Weight: 54 kg

DRUGS (10)
  1. VICTOZA HIKACHU INJECTION [Suspect]
     Indication: TYPE 2 DIABETES MELLITUS
     Dosage: 0.3 MG, QD
     Route: 058
     Dates: start: 20130810, end: 20130823
  2. ENALAPRIL MALEATE [Concomitant]
     Indication: HYPERTENSION
     Dosage: 5 MG, QD
     Route: 048
     Dates: start: 20130531
  3. THYRADIN S [Concomitant]
     Indication: HYPOTHYROIDISM
     Dosage: 75 UG, QD
     Route: 048
  4. TATSUZOSIN [Concomitant]
     Indication: HYPERTENSION
     Dosage: 8 MG, QD
     Route: 048
     Dates: start: 20130531
  5. FUROSEMIDE [Concomitant]
     Indication: CARDIAC FAILURE
     Dosage: 8 MG, QD
     Route: 048
     Dates: start: 2011
  6. TIALAREAD [Concomitant]
     Indication: DEMENTIA
     Dosage: 50 MG, QD
     Route: 048
     Dates: start: 20130521
  7. ALLOZYM [Concomitant]
     Indication: HYPERURICAEMIA
     Dosage: 200 MG, QD
     Route: 048
     Dates: start: 20130531
  8. FENELMIN [Concomitant]
     Indication: IRON DEFICIENCY ANAEMIA
     Dosage: 50 MG, QD
     Route: 048
     Dates: start: 20130527
  9. NIFEDIPINE [Concomitant]
     Indication: HYPERTENSION
     Dosage: 60 MG, QD
     Route: 048
     Dates: start: 20130531
  10. NESP [Concomitant]
     Indication: RENAL FAILURE CHRONIC
     Dosage: 60 MICROG EVERY OTHER WEEK
     Route: 042

REACTIONS (1)
  - Drug eruption [Recovered/Resolved]
